FAERS Safety Report 24216305 (Version 1)
Quarter: 2024Q3

REPORT INFORMATION
  Report Type: Spontaneous
  Country: KR (occurrence: KR)
  Receive Date: 20240816
  Receipt Date: 20240816
  Transmission Date: 20241016
  Serious: No
  Sender: MERCK
  Company Number: KR-009507513-2408KOR002821

PATIENT
  Sex: Female

DRUGS (1)
  1. LAGEVRIO [Suspect]
     Active Substance: MOLNUPIRAVIR
     Dosage: ONLY TAKEN IT FOR 3.5 DAYS
     Route: 048

REACTIONS (3)
  - Product physical issue [Unknown]
  - Product leakage [Unknown]
  - Poor quality product administered [Unknown]
